FAERS Safety Report 11740956 (Version 1)
Quarter: 2015Q4

REPORT INFORMATION
  Report Type: Spontaneous
  Country: IE (occurrence: IE)
  Receive Date: 20151115
  Receipt Date: 20151115
  Transmission Date: 20160304
  Serious: Yes (Other)
  Sender: FDA-Public Use
  Company Number: PHHY2015IE146963

PATIENT
  Age: 68 Year
  Sex: Female

DRUGS (3)
  1. CLOBAZAM [Concomitant]
     Active Substance: CLOBAZAM
     Indication: SEIZURE
     Route: 065
  2. OXCARBAZEPINE. [Suspect]
     Active Substance: OXCARBAZEPINE
     Indication: SEIZURE
     Route: 065
  3. LEVETIRACETAM. [Concomitant]
     Active Substance: LEVETIRACETAM
     Indication: SEIZURE
     Route: 065

REACTIONS (1)
  - Neutropenia [Unknown]
